FAERS Safety Report 6130025-X (Version None)
Quarter: 2009Q1

REPORT INFORMATION
  Report Type: 
  Country: None (occurrence: None)
  Receive Date: 20090324
  Receipt Date: 20090317
  Transmission Date: 20090719
  Serious: Yes (Other)
  Sender: FDA-Public Use
  Company Number: US-GENENTECH-279350

PATIENT
  Age: 78 Year
  Sex: Male

DRUGS (5)
  1. RITUXAN [Suspect]
     Indication: NON-HODGKIN'S LYMPHOMA
     Dosage: UNK
  2. CYCLOPHOSPHAMIDE [Suspect]
     Indication: B-CELL LYMPHOMA
     Dosage: UNK
  3. DOXORUBICIN HCL [Suspect]
     Indication: B-CELL LYMPHOMA
     Dosage: UNK
  4. VINCRISTINE [Suspect]
     Indication: B-CELL LYMPHOMA
     Dosage: UNK
  5. PREDNISONE [Suspect]
     Indication: B-CELL LYMPHOMA
     Dosage: UNK

REACTIONS (1)
  - VENTRICULAR EXTRASYSTOLES [None]
